FAERS Safety Report 13251688 (Version 4)
Quarter: 2019Q1

REPORT INFORMATION
  Report Type: Spontaneous
  Country: US (occurrence: US)
  Receive Date: 20170220
  Receipt Date: 20190319
  Transmission Date: 20190417
  Serious: No
  Sender: FDA-Public Use
  Company Number: US-PFIZER INC-2016487946

PATIENT
  Age: 50 Year
  Sex: Female
  Weight: 84 kg

DRUGS (6)
  1. OZEMPIC [Concomitant]
     Active Substance: SEMAGLUTIDE
     Indication: DIABETES MELLITUS
     Dosage: UNK
  2. GENOTROPIN MQ [Suspect]
     Active Substance: SOMATROPIN
     Indication: ENDOCRINE GLAND OPERATION
     Dosage: (.1) ONCE A DAY
  3. LYSODREN [Concomitant]
     Active Substance: MITOTANE
     Dosage: UNK
  4. HUMIRA [Concomitant]
     Active Substance: ADALIMUMAB
     Dosage: UNK
  5. GENOTROPIN MQ [Suspect]
     Active Substance: SOMATROPIN
     Indication: GROWTH HORMONE DEFICIENCY
     Dosage: 0.8 (NO UNIT PROVIDED), ONCE DAILY
     Dates: start: 201609, end: 201701
  6. GENOTROPIN MQ [Suspect]
     Active Substance: SOMATROPIN
     Dosage: 1.0 MG, DAILY
     Route: 058

REACTIONS (3)
  - Fatigue [Recovered/Resolved]
  - Tri-iodothyronine decreased [Unknown]
  - Malaise [Recovered/Resolved]

NARRATIVE: CASE EVENT DATE: 20170301
